FAERS Safety Report 8240053-6 (Version None)
Quarter: 2012Q1

REPORT INFORMATION
  Report Type: 
  Country: None (occurrence: None)
  Receive Date: 20120328
  Receipt Date: 20120326
  Transmission Date: 20120608
  Serious: Yes (Hospitalization)
  Sender: FDA-Public Use
  Company Number: US-B.I. PHARMACEUTICALS,INC./RIDGEFIELD-2012-BP-04589BP

PATIENT
  Sex: Female

DRUGS (3)
  1. SPIRIVA [Suspect]
     Indication: CHRONIC OBSTRUCTIVE PULMONARY DISEASE
     Dosage: 18 MCG
     Route: 055
     Dates: start: 20111104
  2. MULTI-VITAMIN [Concomitant]
     Indication: PROPHYLAXIS
  3. RESCUE INHALER [Concomitant]

REACTIONS (3)
  - OVARIAN MASS [None]
  - CONSTIPATION [None]
  - DRY MOUTH [None]
